FAERS Safety Report 14914111 (Version 1)
Quarter: 2018Q2

REPORT INFORMATION
  Report Type: Spontaneous
  Country: US (occurrence: US)
  Receive Date: 20180518
  Receipt Date: 20180518
  Transmission Date: 20180711
  Serious: No
  Sender: FDA-Public Use
  Company Number: US-BAYER-2018-091557

PATIENT
  Sex: Female

DRUGS (10)
  1. OMEPRAZOLE MAGNESIUM. [Suspect]
     Active Substance: OMEPRAZOLE MAGNESIUM
     Dosage: 20.6 MG, UNK
  2. GABAPENTIN. [Concomitant]
     Active Substance: GABAPENTIN
  3. MELOXICAM. [Concomitant]
     Active Substance: MELOXICAM
  4. CARAFATE [Concomitant]
     Active Substance: SUCRALFATE
  5. ALEVE [Suspect]
     Active Substance: NAPROXEN SODIUM
     Dosage: TABLESPOON
  6. TEGRETOL [Concomitant]
     Active Substance: CARBAMAZEPINE
  7. DANASIN [Concomitant]
     Indication: MULTIPLE ALLERGIES
  8. MECLIZINE [Concomitant]
     Active Substance: MECLIZINE HYDROCHLORIDE
  9. DICYCLOMINE [Concomitant]
     Active Substance: DICYCLOMINE HYDROCHLORIDE
  10. ONDANSETRON [Concomitant]
     Active Substance: ONDANSETRON

REACTIONS (7)
  - Nausea [None]
  - Hyperhidrosis [None]
  - Dysstasia [None]
  - Adverse event [None]
  - Dizziness [None]
  - Malaise [None]
  - Gastric disorder [None]

NARRATIVE: CASE EVENT DATE: 20180502
